FAERS Safety Report 25655100 (Version 1)
Quarter: 2025Q3

REPORT INFORMATION
  Report Type: Spontaneous
  Country: EU (occurrence: EU)
  Receive Date: 20250807
  Receipt Date: 20250807
  Transmission Date: 20251020
  Serious: Yes (Hospitalization)
  Sender: TEVA
  Company Number: EU-DCGMA-18179037

PATIENT
  Age: 5 Year
  Sex: Female
  Weight: 24 kg

DRUGS (1)
  1. CEPHALEXIN [Suspect]
     Active Substance: CEPHALEXIN
     Indication: Accidental exposure to product by child
     Route: 048
     Dates: start: 20181022, end: 20181022

REACTIONS (3)
  - Product administration error [Recovering/Resolving]
  - Accidental exposure to product by child [Recovering/Resolving]
  - Hyperbilirubinaemia [Recovering/Resolving]

NARRATIVE: CASE EVENT DATE: 20181024
